FAERS Safety Report 6656790-0 (Version None)
Quarter: 2010Q1

REPORT INFORMATION
  Report Type: 
  Country: None (occurrence: None)
  Receive Date: 20100329
  Receipt Date: 20100323
  Transmission Date: 20100710
  Serious: Yes (Hospitalization, Other)
  Sender: FDA-Public Use
  Company Number: US-MERCK-0806USA00571

PATIENT
  Age: 55 Year
  Sex: Female

DRUGS (16)
  1. FOSAMAX PLUS D [Suspect]
     Indication: OSTEOPOROSIS
     Route: 048
     Dates: start: 20040101, end: 20080601
  2. LISINOPRIL [Concomitant]
     Route: 065
  3. METOPROLOL [Concomitant]
     Route: 065
  4. HYDROXYZINE HYDROCHLORIDE [Concomitant]
     Route: 065
  5. LOVASTATIN [Concomitant]
     Route: 048
  6. OMEPRAZOLE [Concomitant]
     Route: 065
  7. ESTRADIOL [Concomitant]
     Route: 065
  8. GLUCOPHAGE [Concomitant]
     Route: 065
  9. PROZAC [Concomitant]
     Route: 065
  10. XANAX [Concomitant]
     Route: 065
  11. PREMARIN [Concomitant]
     Route: 065
  12. VALTREX [Concomitant]
     Route: 065
  13. ZOVIRAX [Concomitant]
     Route: 065
  14. CYANOCOBALAMIN [Concomitant]
     Route: 065
  15. CALCIUM (UNSPECIFIED) AND VITAMIN D (UNSPECIFIED) [Concomitant]
     Route: 065
  16. METFORMIN [Concomitant]
     Route: 065

REACTIONS (15)
  - ABDOMINAL PAIN UPPER [None]
  - BACK PAIN [None]
  - CHEST PAIN [None]
  - CONVULSION [None]
  - DIARRHOEA [None]
  - DIZZINESS [None]
  - FAECAL INCONTINENCE [None]
  - HEADACHE [None]
  - HYPERHIDROSIS [None]
  - MUSCULOSKELETAL PAIN [None]
  - NAUSEA [None]
  - OESOPHAGITIS [None]
  - OROPHARYNGEAL PAIN [None]
  - PALPITATIONS [None]
  - URINARY INCONTINENCE [None]
